FAERS Safety Report 15837709 (Version 2)
Quarter: 2019Q1

REPORT INFORMATION
  Report Type: Spontaneous
  Country: US (occurrence: US)
  Receive Date: 20190117
  Receipt Date: 20190118
  Transmission Date: 20190417
  Serious: No
  Sender: FDA-Public Use
  Company Number: US-SA-2019SA011926

PATIENT
  Sex: Female

DRUGS (1)
  1. DUPIXENT [Suspect]
     Active Substance: DUPILUMAB
     Indication: DERMATITIS ATOPIC
     Dosage: 300 MG, (EVERY OTHER)
     Route: 058
     Dates: start: 20180925

REACTIONS (3)
  - Dermatitis [Unknown]
  - Pruritus [Unknown]
  - Drug ineffective [Unknown]
